FAERS Safety Report 7785285-6 (Version None)
Quarter: 2011Q3

REPORT INFORMATION
  Report Type: 
  Country: None (occurrence: None)
  Receive Date: 20110929
  Receipt Date: 20110920
  Transmission Date: 20111222
  Serious: Yes (Hospitalization, Other)
  Sender: FDA-Public Use
  Company Number: DE-JNJFOC-20110908512

PATIENT
  Sex: Male

DRUGS (3)
  1. CLOZAPINE [Suspect]
     Indication: DRUG ABUSE
     Route: 048
     Dates: start: 20110919, end: 20110919
  2. HALDOL [Suspect]
     Indication: DRUG ABUSE
     Route: 048
     Dates: start: 20110919, end: 20110919
  3. SOLIAN [Suspect]
     Indication: DRUG ABUSE
     Route: 048
     Dates: start: 20110919, end: 20110919

REACTIONS (4)
  - DRUG ABUSE [None]
  - GASTROINTESTINAL SOUNDS ABNORMAL [None]
  - GAIT DISTURBANCE [None]
  - SALIVARY HYPERSECRETION [None]
